FAERS Safety Report 4443568-1 (Version None)
Quarter: 2004Q3

REPORT INFORMATION
  Report Type: 
  Country: None (occurrence: None)
  Receive Date: 20040903
  Receipt Date: 20040903
  Transmission Date: 20050211
  Serious: Yes (Hospitalization)
  Sender: FDA-Public Use
  Company Number: None

PATIENT
  Age: 51 Year
  Sex: Male

DRUGS (1)
  1. ZIPRASIDONE [Suspect]
     Indication: MENTAL STATUS CHANGES
     Dosage: 20 MG ONETIME IM
     Route: 042
     Dates: start: 20040513

REACTIONS (1)
  - ATRIAL FIBRILLATION [None]
